FAERS Safety Report 8448838-8 (Version None)
Quarter: 2012Q2

REPORT INFORMATION
  Report Type: 
  Country: None (occurrence: None)
  Receive Date: 20120619
  Receipt Date: 20120605
  Transmission Date: 20120825
  Serious: No
  Sender: FDA-Public Use
  Company Number: US-ASTRAZENECA-2012SE37651

PATIENT
  Age: 58 Year
  Sex: Female
  Weight: 54.1 kg

DRUGS (11)
  1. LASIX [Concomitant]
  2. FASLODEX [Suspect]
     Indication: BREAST CANCER
     Route: 030
     Dates: start: 20110519
  3. KLONOPIN [Concomitant]
  4. CARDIZEM [Concomitant]
  5. LOPRESSOR [Concomitant]
  6. GLUCOPHAGE [Concomitant]
  7. PRADAXA [Concomitant]
  8. OXYCODONE HCL [Concomitant]
  9. DULCOLAX [Concomitant]
  10. ATROVENT [Concomitant]
  11. DIGOXIN [Concomitant]

REACTIONS (9)
  - PALPITATIONS [None]
  - ANXIETY [None]
  - FLUSHING [None]
  - TREMOR [None]
  - THROAT IRRITATION [None]
  - LIP DRY [None]
  - TACHYCARDIA [None]
  - CHEST PAIN [None]
  - BLOOD PRESSURE INCREASED [None]
